FAERS Safety Report 11720119 (Version 2)
Quarter: 2015Q4

REPORT INFORMATION
  Report Type: Report from Study
  Country: US (occurrence: US)
  Receive Date: 20151110
  Receipt Date: 20151222
  Transmission Date: 20160304
  Serious: Yes (Other)
  Sender: FDA-Public Use
  Company Number: US-ROCHE-1649589

PATIENT
  Age: 75 Year
  Sex: Male
  Weight: 90.8 kg

DRUGS (10)
  1. DILTIAZEM [Concomitant]
     Active Substance: DILTIAZEM
     Route: 048
     Dates: start: 2012
  2. BABY ASPIRIN [Concomitant]
     Active Substance: ASPIRIN
     Dosage: BEEN TAKING FOR MANY YEARS
     Route: 048
  3. LIPITOR [Concomitant]
     Active Substance: ATORVASTATIN CALCIUM
     Dosage: BEEN TAKING FOR MANY YEARS
     Route: 048
  4. ESBRIET [Suspect]
     Active Substance: PIRFENIDONE
     Indication: IDIOPATHIC PULMONARY FIBROSIS
     Route: 048
     Dates: start: 201509
  5. ESBRIET [Suspect]
     Active Substance: PIRFENIDONE
     Route: 048
     Dates: start: 20151009
  6. DIGOXIN. [Concomitant]
     Active Substance: DIGOXIN
     Route: 048
     Dates: start: 2012
  7. XARELTO [Concomitant]
     Active Substance: RIVAROXABAN
     Indication: ATRIAL FIBRILLATION
     Route: 048
     Dates: start: 2012
  8. LOSARTAN POTASSIUM. [Concomitant]
     Active Substance: LOSARTAN POTASSIUM
     Route: 048
     Dates: start: 2012
  9. XARELTO [Concomitant]
     Active Substance: RIVAROXABAN
     Indication: ANTICOAGULANT THERAPY
  10. TORSEMIDE. [Concomitant]
     Active Substance: TORSEMIDE
     Dosage: WATER PILL
     Route: 048
     Dates: start: 2012

REACTIONS (3)
  - Epistaxis [Recovered/Resolved]
  - Drug ineffective [Unknown]
  - Epistaxis [Recovered/Resolved]

NARRATIVE: CASE EVENT DATE: 20151021
